FAERS Safety Report 8295717 (Version 2)
Quarter: 2012Q4

REPORT INFORMATION
  Report Type: 
  Country: US (occurrence: US)
  Receive Date: 20111216
  Receipt Date: 20121218
  Transmission Date: 20130627
  Serious: No
  Sender: FDA-Public Use
  Company Number: US-BRISTOL-MYERS SQUIBB COMPANY-15950660

PATIENT

DRUGS (2)
  1. ABILIFY TABS 10 MG [Suspect]
     Indication: ANXIETY
     Dosage: Abilify tabs 10 mg  30 tbs
  2. ABILIFY TABS 10 MG [Suspect]
     Indication: DEPRESSION
     Dosage: Abilify tabs 10 mg  30 tbs

REACTIONS (1)
  - Drug ineffective [Unknown]
